FAERS Safety Report 19873804 (Version 3)
Quarter: 2021Q3

REPORT INFORMATION
  Report Type: Spontaneous
  Country: ES (occurrence: ES)
  Receive Date: 20210922
  Receipt Date: 20210927
  Transmission Date: 20211014
  Serious: Yes (Hospitalization)
  Sender: FDA-Public Use
  Company Number: ES-PFIZER INC-202101240748

PATIENT
  Age: 83 Year
  Sex: Male

DRUGS (12)
  1. TAPENTADOL [Concomitant]
     Active Substance: TAPENTADOL
     Dosage: 25 MG, TID (3/DAY)
     Route: 065
  2. DEXAMETHASONE. [Concomitant]
     Active Substance: DEXAMETHASONE
     Dosage: 2 MG, QD (1/DAY)
     Route: 065
  3. SILODOSIN. [Concomitant]
     Active Substance: SILODOSIN
     Dosage: 8 MG, QD (1/DAY)
     Route: 065
  4. BOI?K ASPARTICO [Concomitant]
     Active Substance: ASPARTIC ACID\POTASSIUM ASCORBATE
     Dosage: UNK, 1X/DAY
     Route: 065
  5. PREGABALIN. [Concomitant]
     Active Substance: PREGABALIN
     Dosage: 75 MG, BID (2/DAY)
     Route: 065
  6. BRAFTOVI [Suspect]
     Active Substance: ENCORAFENIB
     Indication: BRAF GENE MUTATION
     Dosage: 450 MG, QD (1/DAY)
     Route: 066
     Dates: start: 20201015, end: 20210713
  7. MEKTOVI [Suspect]
     Active Substance: BINIMETINIB
     Indication: BRAF GENE MUTATION
     Dosage: 45 MG, 2X/DAY (45 MG, BID)
     Route: 065
     Dates: start: 20201015, end: 20210713
  8. FENTANYL CURAMED [Concomitant]
     Active Substance: FENTANYL CITRATE
     Indication: PAIN
     Dosage: 100 ?G, PRN
     Route: 065
  9. METAMIZOLE [Concomitant]
     Active Substance: METAMIZOLE
     Dosage: UNK
     Route: 065
  10. ASA ARTHRITIS STRENGTH ASPIRIN [Concomitant]
     Active Substance: ASPIRIN
     Dosage: 300 MG, QD (1/DAY)
     Route: 065
  11. OMEPRAZOL A [Concomitant]
     Dosage: 20 MG, QD (1/DAY)
     Route: 065
  12. SIMVASTATIN. [Concomitant]
     Active Substance: SIMVASTATIN
     Dosage: 10 MG, QD (1/DAY)

REACTIONS (1)
  - Colitis [Recovered/Resolved]

NARRATIVE: CASE EVENT DATE: 20210709
